FAERS Safety Report 10305818 (Version 1)
Quarter: 2014Q3

REPORT INFORMATION
  Report Type: Spontaneous
  Country: US (occurrence: None)
  Receive Date: 20140711
  Receipt Date: 20140711
  Transmission Date: 20150326
  Serious: No
  Sender: FDA-Public Use
  Company Number: None

PATIENT
  Age: 50 Year
  Sex: Male

DRUGS (1)
  1. SULFAMETHOXAZOLE-TRIMETHOPRIM (SMZ) [Suspect]
     Active Substance: SULFAMETHOXAZOLE\TRIMETHOPRIM
     Indication: PROSTATITIS
     Dosage: 1 EVERY 12 HOURS  TWICE DAILY TAKEN BY MOUTH
     Route: 048
     Dates: start: 20140629, end: 20140709

REACTIONS (7)
  - Nausea [None]
  - Rash generalised [None]
  - Drug dispensing error [None]
  - Influenza like illness [None]
  - Dyspnoea exertional [None]
  - Arthralgia [None]
  - Decreased appetite [None]

NARRATIVE: CASE EVENT DATE: 20140709
